FAERS Safety Report 25249872 (Version 1)
Quarter: 2025Q2

REPORT INFORMATION
  Report Type: Other
  Country: US (occurrence: US)
  Receive Date: 20250429
  Receipt Date: 20250429
  Transmission Date: 20250717
  Serious: Yes (Hospitalization, Other)
  Sender: ANI
  Company Number: US-ANIPHARMA-022595

PATIENT
  Age: 66 Year
  Sex: Female

DRUGS (6)
  1. SULFAMETHOXAZOLE\TRIMETHOPRIM [Suspect]
     Active Substance: SULFAMETHOXAZOLE\TRIMETHOPRIM
     Indication: Implant site cellulitis
  2. METOPROLOL [Concomitant]
     Active Substance: METOPROLOL
     Indication: Atrial fibrillation
  3. SPIRONOLACTONE [Concomitant]
     Active Substance: SPIRONOLACTONE
     Indication: Heart failure with preserved ejection fraction
  4. FUROSEMIDE [Concomitant]
     Active Substance: FUROSEMIDE
     Indication: Heart failure with preserved ejection fraction
  5. POTASSIUM CHLORIDE [Concomitant]
     Active Substance: POTASSIUM CHLORIDE
     Indication: Heart failure with preserved ejection fraction
  6. METOPROLOL [Concomitant]
     Active Substance: METOPROLOL
     Indication: Sinus node dysfunction

REACTIONS (1)
  - BRASH syndrome [Recovering/Resolving]
